FAERS Safety Report 5713900-7 (Version None)
Quarter: 2008Q2

REPORT INFORMATION
  Report Type: 
  Country: None (occurrence: None)
  Receive Date: 20080422
  Receipt Date: 20080422
  Transmission Date: 20081010
  Serious: Yes (Other)
  Sender: FDA-Public Use
  Company Number: None

PATIENT
  Age: 34 Year
  Sex: Female
  Weight: 77.1115 kg

DRUGS (2)
  1. SINGULAIR [Suspect]
     Indication: ASTHMA
     Dosage: 1 PILL BEFORE BEDTIME 1/DAY PO
     Route: 048
     Dates: start: 20080315, end: 20080315
  2. SINGULAIR [Suspect]
     Indication: MULTIPLE ALLERGIES
     Dosage: 1 PILL BEFORE BEDTIME 1/DAY PO
     Route: 048
     Dates: start: 20080315, end: 20080315

REACTIONS (1)
  - URTICARIA [None]
